FAERS Safety Report 22228728 (Version 1)
Quarter: 2023Q2

REPORT INFORMATION
  Report Type: Spontaneous
  Country: US (occurrence: None)
  Receive Date: 20230418
  Receipt Date: 20230418
  Transmission Date: 20230721
  Serious: Yes (Other)
  Sender: FDA-Public Use
  Company Number: None

PATIENT
  Age: 79 Year
  Sex: Female

DRUGS (4)
  1. TRAMADOL [Suspect]
     Active Substance: TRAMADOL
     Route: 048
     Dates: start: 20230321, end: 20230411
  2. METOPROLOL [Suspect]
  3. WARFARIN [Concomitant]
     Active Substance: WARFARIN
  4. DOGOXIN [Concomitant]

REACTIONS (5)
  - Tremor [None]
  - Nausea [None]
  - Somnolence [None]
  - Product dispensing error [None]
  - Wrong product administered [None]

NARRATIVE: CASE EVENT DATE: 20230401
